FAERS Safety Report 4388041-4 (Version None)
Quarter: 2004Q2

REPORT INFORMATION
  Report Type: 
  Country: None (occurrence: None)
  Receive Date: 20040607
  Receipt Date: 20030829
  Transmission Date: 20050107
  Serious: Yes (Other)
  Sender: FDA-Public Use
  Company Number: 327387

PATIENT

DRUGS (2)
  1. ACCUTANE [Suspect]
     Indication: DRUG USE FOR UNKNOWN INDICATION
     Dosage: 1 PER ONE DOSE TOPICAL
     Route: 061
     Dates: start: 20021215, end: 20021215
  2. PRENATAL VITAMINS (MINERALS NOS/MULTIVITAMIN NOS) [Concomitant]

REACTIONS (3)
  - ACCIDENTAL EXPOSURE [None]
  - NO ADVERSE DRUG EFFECT [None]
  - PREGNANCY [None]
